FAERS Safety Report 4464904-6 (Version None)
Quarter: 2004Q4

REPORT INFORMATION
  Report Type: 
  Country: None (occurrence: None)
  Receive Date: 20041004
  Receipt Date: 20040204
  Transmission Date: 20050328
  Serious: No
  Sender: FDA-Public Use
  Company Number: 361825

PATIENT
  Age: 56 Year
  Sex: Male

DRUGS (8)
  1. COREG [Suspect]
     Indication: HYPERTENSION
     Dosage: 25MG TWICE PER DAY
     Route: 048
  2. INSULIN [Concomitant]
  3. COZAAR [Concomitant]
  4. GEMFIBROZIL [Concomitant]
  5. PLAVIX [Concomitant]
  6. THYROID MEDICATION [Concomitant]
  7. FLOMAX [Concomitant]
  8. PROSCAR [Concomitant]

REACTIONS (4)
  - BLOOD PRESSURE INCREASED [None]
  - HEART RATE INCREASED [None]
  - MEMORY IMPAIRMENT [None]
  - TINNITUS [None]
